FAERS Safety Report 9191084 (Version 6)
Quarter: 2014Q3

REPORT INFORMATION
  Report Type: Spontaneous
  Country: US (occurrence: US)
  Receive Date: 20130326
  Receipt Date: 20140730
  Transmission Date: 20150326
  Serious: Yes (Hospitalization, Disabling)
  Sender: FDA-Public Use
  Company Number: US-009507513-1303USA011190

PATIENT
  Sex: Male
  Weight: 97.51 kg

DRUGS (3)
  1. FINASTERIDE. [Suspect]
     Active Substance: FINASTERIDE
     Indication: ALOPECIA
     Dosage: 5 MG, QD
     Route: 048
     Dates: start: 20080101, end: 20140428
  2. PROPECIA [Suspect]
     Active Substance: FINASTERIDE
     Indication: ALOPECIA
     Dosage: 1 MG, QD
     Route: 048
     Dates: start: 19980626, end: 20091002
  3. FINASTERIDE. [Suspect]
     Active Substance: FINASTERIDE
     Indication: BENIGN PROSTATIC HYPERPLASIA

REACTIONS (23)
  - Cognitive disorder [Not Recovered/Not Resolved]
  - Osteoarthritis [Unknown]
  - Colon operation [Unknown]
  - Tuberculosis [Unknown]
  - Insomnia [Unknown]
  - Erectile dysfunction [Unknown]
  - Depression [Unknown]
  - Diabetes mellitus [Unknown]
  - Benign prostatic hyperplasia [Unknown]
  - Shoulder operation [Unknown]
  - Diverticulitis [Unknown]
  - Joint instability [Unknown]
  - Hyperlipidaemia [Unknown]
  - Back injury [Unknown]
  - Fatigue [Unknown]
  - Hypertension [Unknown]
  - Anxiety [Unknown]
  - Sexual dysfunction [Not Recovered/Not Resolved]
  - Joint injury [Unknown]
  - Gilbert^s syndrome [Unknown]
  - Gastrooesophageal reflux disease [Unknown]
  - Malaise [Unknown]
  - Back pain [Unknown]

NARRATIVE: CASE EVENT DATE: 1998
